FAERS Safety Report 8322940 (Version 3)
Quarter: 2013Q1

REPORT INFORMATION
  Report Type: Report from Study
  Country: AT (occurrence: AT)
  Receive Date: 20120105
  Receipt Date: 20130318
  Transmission Date: 20140127
  Serious: Yes (Hospitalization)
  Sender: FDA-Public Use
  Company Number: AT-JNJFOC-20120100498

PATIENT
  Age: 29 Year
  Sex: Female

DRUGS (4)
  1. PALIPERIDONE [Suspect]
     Indication: SCHIZOPHRENIA
     Route: 030
     Dates: start: 20111129
  2. PALIPERIDONE [Suspect]
     Indication: SCHIZOPHRENIA
     Route: 030
     Dates: start: 20111206
  3. VENLAFAXINE [Concomitant]
     Indication: DEPRESSION
     Route: 065
     Dates: start: 20111203, end: 20111206
  4. FLUVASTATIN [Concomitant]
     Indication: HYPERCHOLESTEROLAEMIA
     Route: 065
     Dates: start: 20111226

REACTIONS (1)
  - Catatonia [Recovered/Resolved]
